FAERS Safety Report 8914754 (Version 1)
Quarter: 2012Q4

REPORT INFORMATION
  Report Type: 
  Country: US (occurrence: US)
  Receive Date: 20121119
  Receipt Date: 20121119
  Transmission Date: 20130627
  Serious: Yes (Other)
  Sender: FDA-Public Use
  Company Number: US-ASTRAZENECA-2012SE85575

PATIENT
  Age: 59 Year
  Sex: Male
  Weight: 133.8 kg

DRUGS (3)
  1. SYMBICORT PMDI [Suspect]
     Indication: CHRONIC OBSTRUCTIVE PULMONARY DISEASE
     Dosage: 160/4.5 MCG, TWO TIMES A DAY
     Route: 055
     Dates: start: 2010
  2. METOPROLOL [Suspect]
     Indication: BLOOD PRESSURE
     Route: 048
     Dates: start: 2006
  3. ASPIRIN [Concomitant]
     Indication: BLOOD PRESSURE
     Route: 048
     Dates: start: 2006

REACTIONS (4)
  - Cataract [Unknown]
  - Glaucoma [Unknown]
  - Respiratory tract infection [Unknown]
  - Intentional drug misuse [Unknown]
